FAERS Safety Report 17666605 (Version 1)
Quarter: 2020Q2

REPORT INFORMATION
  Report Type: Spontaneous
  Country: SG (occurrence: SG)
  Receive Date: 20200414
  Receipt Date: 20200414
  Transmission Date: 20200713
  Serious: Yes (Death, Life-Threatening)
  Sender: FDA-Public Use
  Company Number: SG-CELGENEUS-SGP-20200402751

PATIENT
  Age: 73 Year
  Sex: Male

DRUGS (25)
  1. DOXORUBICIN [Concomitant]
     Active Substance: DOXORUBICIN
     Indication: DIFFUSE LARGE B-CELL LYMPHOMA
     Route: 065
  2. DOXORUBICIN [Concomitant]
     Active Substance: DOXORUBICIN
     Route: 065
  3. RITUXIMAB. [Concomitant]
     Active Substance: RITUXIMAB
     Indication: DIFFUSE LARGE B-CELL LYMPHOMA RECURRENT
     Route: 065
     Dates: start: 20180201, end: 20180801
  4. RITUXIMAB. [Concomitant]
     Active Substance: RITUXIMAB
     Route: 065
  5. PREDNISONE. [Concomitant]
     Active Substance: PREDNISONE
     Indication: DIFFUSE LARGE B-CELL LYMPHOMA
     Route: 065
  6. PREDNISONE. [Concomitant]
     Active Substance: PREDNISONE
     Route: 065
  7. GEMCITABINE. [Concomitant]
     Active Substance: GEMCITABINE
     Indication: DIFFUSE LARGE B-CELL LYMPHOMA RECURRENT
     Route: 065
     Dates: start: 20180201, end: 20180801
  8. REVLIMID [Suspect]
     Active Substance: LENALIDOMIDE
     Route: 048
     Dates: end: 20190201
  9. CYCLOPHOSPHAMIDE. [Concomitant]
     Active Substance: CYCLOPHOSPHAMIDE
     Route: 065
  10. VINCRISTINE [Concomitant]
     Active Substance: VINCRISTINE
     Indication: DIFFUSE LARGE B-CELL LYMPHOMA
     Route: 065
  11. ETOPOSIDE. [Concomitant]
     Active Substance: ETOPOSIDE
     Indication: DIFFUSE LARGE B-CELL LYMPHOMA
     Route: 065
  12. CYCLOPHOSPHAMIDE. [Concomitant]
     Active Substance: CYCLOPHOSPHAMIDE
     Indication: DIFFUSE LARGE B-CELL LYMPHOMA
     Route: 065
  13. VINCRISTINE [Concomitant]
     Active Substance: VINCRISTINE
     Route: 065
  14. BENDAMUSTINE [Concomitant]
     Active Substance: BENDAMUSTINE
     Indication: DIFFUSE LARGE B-CELL LYMPHOMA RECURRENT
     Route: 065
     Dates: start: 20200120
  15. DEXAMETHASONE. [Concomitant]
     Active Substance: DEXAMETHASONE
     Indication: DIFFUSE LARGE B-CELL LYMPHOMA RECURRENT
     Route: 065
     Dates: start: 20180201, end: 20180801
  16. REVLIMID [Suspect]
     Active Substance: LENALIDOMIDE
     Indication: DIFFUSE LARGE B-CELL LYMPHOMA RECURRENT
     Route: 048
     Dates: start: 20180201, end: 20180801
  17. POLATUZUMAB VEDOTIN. [Concomitant]
     Active Substance: POLATUZUMAB VEDOTIN
     Indication: DIFFUSE LARGE B-CELL LYMPHOMA RECURRENT
     Route: 065
     Dates: start: 20200120
  18. PREDNISONE. [Concomitant]
     Active Substance: PREDNISONE
     Route: 065
  19. VINCRISTINE [Concomitant]
     Active Substance: VINCRISTINE
     Route: 065
  20. CYCLOPHOSPHAMIDE. [Concomitant]
     Active Substance: CYCLOPHOSPHAMIDE
     Route: 065
  21. DOXORUBICIN [Concomitant]
     Active Substance: DOXORUBICIN
     Route: 065
  22. ETOPOSIDE. [Concomitant]
     Active Substance: ETOPOSIDE
     Route: 065
  23. RITUXIMAB. [Concomitant]
     Active Substance: RITUXIMAB
     Route: 065
     Dates: start: 20200120
  24. RITUXIMAB. [Concomitant]
     Active Substance: RITUXIMAB
     Route: 065
  25. CISPLATIN. [Concomitant]
     Active Substance: CISPLATIN
     Indication: DIFFUSE LARGE B-CELL LYMPHOMA RECURRENT
     Route: 065
     Dates: start: 20180201, end: 20180801

REACTIONS (4)
  - Therapeutic response decreased [Unknown]
  - Diffuse large B-cell lymphoma recurrent [Unknown]
  - Infection [Fatal]
  - Haemorrhage [Fatal]

NARRATIVE: CASE EVENT DATE: 2019
